FAERS Safety Report 8145808-4 (Version None)
Quarter: 2012Q1

REPORT INFORMATION
  Report Type: 
  Country: None (occurrence: None)
  Receive Date: 20120217
  Receipt Date: 20110303
  Transmission Date: 20120608
  Serious: No
  Sender: FDA-Public Use
  Company Number: US-ABBOTT-11P-163-0708956-00

PATIENT
  Sex: Male
  Weight: 74.91 kg

DRUGS (4)
  1. SIMCOR [Suspect]
     Indication: ARTERIOSCLEROSIS
     Dosage: 1000/40MG QHS
  2. ASPIRIN [Concomitant]
     Indication: PRODUCT USED FOR UNKNOWN INDICATION
     Dosage: AT BEDTIME
  3. LISINOPRIL [Concomitant]
     Indication: PRODUCT USED FOR UNKNOWN INDICATION
  4. SIMCOR [Suspect]
     Dosage: 1000/40NG TABLETS AT BEDTIME

REACTIONS (1)
  - FLUSHING [None]
